FAERS Safety Report 7544144-4 (Version None)
Quarter: 2011Q2

REPORT INFORMATION
  Report Type: 
  Country: None (occurrence: None)
  Receive Date: 20110613
  Receipt Date: 20060222
  Transmission Date: 20111010
  Serious: Yes (Hospitalization)
  Sender: FDA-Public Use
  Company Number: PHFR2006IE00951

PATIENT
  Sex: Male

DRUGS (4)
  1. CHLORPROMAZINE HCL [Suspect]
     Dosage: 150 MG, MANE
     Route: 065
  2. CLOZAPINE [Suspect]
     Indication: SCHIZOPHRENIA
     Dosage: 150 MG, MANE
     Route: 048
     Dates: start: 20020123
  3. CLOZAPINE [Suspect]
     Dosage: 250 MG, NOCTE
     Route: 048
     Dates: start: 20020123
  4. CHLORPROMAZINE HCL [Suspect]
     Dosage: 250 MG, NOCTE

REACTIONS (3)
  - NON-CARDIAC CHEST PAIN [None]
  - DYSPNOEA [None]
  - MEDICATION ERROR [None]
